FAERS Safety Report 17914929 (Version 1)
Quarter: 2020Q2

REPORT INFORMATION
  Report Type: Spontaneous
  Country: NZ (occurrence: NZ)
  Receive Date: 20200618
  Receipt Date: 20200618
  Transmission Date: 20200714
  Serious: Yes (Other)
  Sender: FDA-Public Use
  Company Number: NZ-GILEAD-2020-0473208

PATIENT
  Age: 69 Year
  Sex: Female

DRUGS (3)
  1. VIREAD [Suspect]
     Active Substance: TENOFOVIR DISOPROXIL FUMARATE
     Indication: CHRONIC HEPATITIS B
     Route: 065
  2. ZOLEDRONATE [Concomitant]
     Active Substance: ZOLEDRONIC ACID
  3. VITAMIN D NOS [Concomitant]
     Active Substance: VITAMIN D NOS

REACTIONS (3)
  - Fanconi syndrome acquired [Recovered/Resolved]
  - Osteomalacia [Unknown]
  - Femur fracture [Recovered/Resolved]
